FAERS Safety Report 7794217-6 (Version None)
Quarter: 2011Q4

REPORT INFORMATION
  Report Type: 
  Country: None (occurrence: None)
  Receive Date: 20111004
  Receipt Date: 20110505
  Transmission Date: 20120403
  Serious: No
  Sender: FDA-Public Use
  Company Number: US-VIIV HEALTHCARE LIMITED-A0926155A

PATIENT
  Sex: Male

DRUGS (1)
  1. SELZENTRY [Suspect]
     Indication: HIV INFECTION
     Route: 065

REACTIONS (1)
  - TOOTH DISCOLOURATION [None]
